FAERS Safety Report 15734731 (Version 1)
Quarter: 2018Q4

REPORT INFORMATION
  Report Type: Spontaneous
  Country: PL (occurrence: PL)
  Receive Date: 20181218
  Receipt Date: 20181218
  Transmission Date: 20190205
  Serious: Yes (Other)
  Sender: FDA-Public Use
  Company Number: PHHY2018PL000564

PATIENT
  Sex: Female

DRUGS (8)
  1. FUROSEMIDE. [Suspect]
     Active Substance: FUROSEMIDE
     Indication: FOCAL SEGMENTAL GLOMERULOSCLEROSIS
     Dosage: 3 DF, QD
     Route: 065
  2. NITRENDIPINE [Suspect]
     Active Substance: NITRENDIPINE
     Indication: PRODUCT USED FOR UNKNOWN INDICATION
     Dosage: 10 MG, BID
     Route: 048
  3. ERYTHROPOIETIN [Suspect]
     Active Substance: ERYTHROPOIETIN
     Indication: PRODUCT USED FOR UNKNOWN INDICATION
     Dosage: UNK
     Route: 065
  4. POLYETHYLENE GLYCOL [Suspect]
     Active Substance: POLYETHYLENE GLYCOLS
     Indication: PRODUCT USED FOR UNKNOWN INDICATION
     Dosage: UNK
     Route: 065
  5. NITRENDIPINE [Suspect]
     Active Substance: NITRENDIPINE
     Dosage: 10 MG,BID
     Route: 048
  6. ATORVASTATIN [Suspect]
     Active Substance: ATORVASTATIN
     Indication: PRODUCT USED FOR UNKNOWN INDICATION
     Route: 065
  7. RAMIPRIL. [Suspect]
     Active Substance: RAMIPRIL
     Indication: PRODUCT USED FOR UNKNOWN INDICATION
     Route: 065
  8. POTASSIUM CHLORIDE. [Suspect]
     Active Substance: POTASSIUM CHLORIDE
     Indication: FOCAL SEGMENTAL GLOMERULOSCLEROSIS
     Dosage: 20 MG,QD
     Route: 048

REACTIONS (4)
  - Maternal exposure during pregnancy [Unknown]
  - Live birth [Unknown]
  - Premature labour [Unknown]
  - Premature delivery [Unknown]
